FAERS Safety Report 12345480 (Version 1)
Quarter: 2016Q2

REPORT INFORMATION
  Report Type: Report from Study
  Country: NL (occurrence: NL)
  Receive Date: 20160508
  Receipt Date: 20160508
  Transmission Date: 20160815
  Serious: Yes (Death, Hospitalization, Other)
  Sender: FDA-Public Use
  Company Number: NL-AMGEN-NLDSL2016056910

PATIENT
  Age: 61 Year
  Sex: Male

DRUGS (1)
  1. ARANESP [Suspect]
     Active Substance: DARBEPOETIN ALFA
     Indication: NEPHROGENIC ANAEMIA
     Dosage: 150 MUG (500 MCG/0.3 ML), Q4WK
     Route: 058

REACTIONS (2)
  - Cardiac procedure complication [Unknown]
  - Death [Fatal]

NARRATIVE: CASE EVENT DATE: 20160223
